FAERS Safety Report 17969960 (Version 1)
Quarter: 2020Q3

REPORT INFORMATION
  Report Type: Spontaneous
  Country: US (occurrence: US)
  Receive Date: 20200701
  Receipt Date: 20200701
  Transmission Date: 20201103
  Serious: Yes (Hospitalization, Other)
  Sender: FDA-Public Use
  Company Number: US-NAPPMUNDI-USA-2020-0154866

PATIENT
  Age: 27 Year

DRUGS (2)
  1. HEROIN [Suspect]
     Active Substance: DIAMORPHINE
     Indication: SUBSTANCE USE
     Dosage: UNK
     Route: 065
  2. OXYCONTIN [Suspect]
     Active Substance: OXYCODONE HYDROCHLORIDE
     Indication: SUBSTANCE USE
     Dosage: UNK
     Route: 048

REACTIONS (4)
  - Ulcer haemorrhage [Unknown]
  - Drug dependence [Unknown]
  - Abscess [Unknown]
  - Seizure [Unknown]
